FAERS Safety Report 6301762-9 (Version None)
Quarter: 2009Q3

REPORT INFORMATION
  Report Type: 
  Country: None (occurrence: None)
  Receive Date: 20090807
  Receipt Date: 20090730
  Transmission Date: 20100115
  Serious: Yes (Life-Threatening, Hospitalization)
  Sender: FDA-Public Use
  Company Number: FR-BRISTOL-MYERS SQUIBB COMPANY-14729156

PATIENT
  Age: 58 Year
  Sex: Male
  Weight: 78 kg

DRUGS (14)
  1. ERBITUX [Suspect]
     Route: 042
     Dates: start: 20090528, end: 20090701
  2. ELOXATIN [Suspect]
     Dosage: 100MG/M2,1 IN 3 WK,28MAY09-01JUL09,85MG/M2,1 IN 3 WK,30APR09-14MAY09,14 DAYS
     Route: 042
     Dates: start: 20090528, end: 20090701
  3. FLUOROURACIL [Suspect]
     Route: 042
     Dates: start: 20090430, end: 20090703
  4. DURAGESIC-100 [Suspect]
     Route: 003
     Dates: start: 20090528, end: 20090703
  5. EUPRESSYL [Concomitant]
     Route: 048
  6. ISOPTIN [Concomitant]
     Route: 048
  7. HYPERIUM [Concomitant]
     Route: 048
  8. KARDEGIC [Concomitant]
     Route: 048
  9. TAHOR [Concomitant]
     Route: 048
  10. OMIX [Concomitant]
     Route: 048
  11. ONDANSETRON HCL [Concomitant]
     Indication: ANTIEMETIC SUPPORTIVE CARE
  12. PRIMPERAN [Concomitant]
     Indication: ANTIEMETIC SUPPORTIVE CARE
  13. EMEND [Concomitant]
     Indication: ANTIEMETIC SUPPORTIVE CARE
     Dosage: 125MG,28MAY09-28MAY09,80MG,29MAY09-30MAY09
     Dates: start: 20090528, end: 20090530
  14. SEVREDOL [Concomitant]

REACTIONS (2)
  - COMA [None]
  - CONVULSION [None]
